FAERS Safety Report 5595700-4 (Version None)
Quarter: 2008Q1

REPORT INFORMATION
  Report Type: 
  Country: None (occurrence: None)
  Receive Date: 20080118
  Receipt Date: 20080104
  Transmission Date: 20080703
  Serious: Yes (Hospitalization)
  Sender: FDA-Public Use
  Company Number: AU-GENENTECH-231707

PATIENT
  Sex: Male

DRUGS (3)
  1. BEVACIZUMAB [Suspect]
     Indication: COLON CANCER METASTATIC
     Dosage: 975 MG, Q3W
     Route: 042
     Dates: start: 20060928, end: 20061011
  2. XELODA [Suspect]
     Indication: COLORECTAL CANCER METASTATIC
     Dosage: 4400 MG, UNK
     Route: 048
     Dates: start: 20060928
  3. MITOMYCIN [Suspect]
     Indication: COLORECTAL CANCER METASTATIC

REACTIONS (2)
  - DIARRHOEA [None]
  - PARTIAL SEIZURES [None]
